FAERS Safety Report 15226879 (Version 1)
Quarter: 2018Q3

REPORT INFORMATION
  Report Type: Spontaneous
  Country: JP (occurrence: JP)
  Receive Date: 20180801
  Receipt Date: 20180801
  Transmission Date: 20181010
  Serious: Yes (Hospitalization)
  Sender: FDA-Public Use
  Company Number: JP-SA-2018SA188339

PATIENT
  Age: 76 Year
  Sex: Male

DRUGS (2)
  1. BCG FOR IMMUNOTHERAPY [Suspect]
     Active Substance: BACILLUS CALMETTE-GUERIN ANTIGEN, UNSPECIFIED SUBSTRAIN
     Dosage: SIXTH INSTILLATION
  2. BCG FOR IMMUNOTHERAPY [Suspect]
     Active Substance: BACILLUS CALMETTE-GUERIN ANTIGEN, UNSPECIFIED SUBSTRAIN
     Indication: BLADDER CANCER
     Dosage: FIRST INSTILLATION

REACTIONS (8)
  - Decreased appetite [Recovered/Resolved]
  - Spondylitis [Recovered/Resolved]
  - Septic shock [Recovered/Resolved]
  - Cytokine storm [Recovered/Resolved]
  - Back pain [Recovered/Resolved]
  - Infective aneurysm [Recovered/Resolved]
  - Walking disability [Recovered/Resolved]
  - Asthenia [Recovered/Resolved]
